FAERS Safety Report 10073892 (Version 4)
Quarter: 2014Q2

REPORT INFORMATION
  Report Type: Report from Study
  Country: FR (occurrence: FR)
  Receive Date: 20140413
  Receipt Date: 20140618
  Transmission Date: 20141212
  Serious: Yes (Hospitalization)
  Sender: FDA-Public Use
  Company Number: FR-B.I. PHARMACEUTICALS,INC./RIDGEFIELD-2014-BI-14761II

PATIENT
  Age: 48 Year
  Sex: Female
  Weight: 52 kg

DRUGS (2)
  1. BIBW 2992 [Suspect]
     Indication: COLORECTAL CANCER METASTATIC
     Dosage: LAST DOSE ADMINISTERED BEFORE SAE: 40MG
     Route: 048
     Dates: start: 20140206
  2. CETUXIMAB [Suspect]
     Indication: COLORECTAL CANCER METASTATIC
     Dosage: LAST DOSE ADMINISTERED BEFORE SAE: 810MG
     Route: 042
     Dates: start: 20140206

REACTIONS (1)
  - Pulmonary embolism [Recovered/Resolved]
